FAERS Safety Report 10784482 (Version 1)
Quarter: 2015Q1

REPORT INFORMATION
  Report Type: Spontaneous
  Country: US (occurrence: None)
  Receive Date: 20150209
  Receipt Date: 20150209
  Transmission Date: 20150721
  Serious: Yes (Other)
  Sender: FDA-Public Use
  Company Number: None

PATIENT
  Age: 27 Year
  Sex: Female
  Weight: 90.72 kg

DRUGS (2)
  1. DEPO-PROVERA [Suspect]
     Active Substance: MEDROXYPROGESTERONE ACETATE
     Indication: MENSTRUATION IRREGULAR
     Dosage: 1 SHOT 1 TIME  PER 3 MONTH INTO THE MUSCLE
     Route: 030
  2. DEPO-PROVERA [Suspect]
     Active Substance: MEDROXYPROGESTERONE ACETATE
     Indication: CONTRACEPTION
     Dosage: 1 SHOT 1 TIME  PER 3 MONTH INTO THE MUSCLE
     Route: 030

REACTIONS (3)
  - Vulvovaginal pain [None]
  - Vaginal haemorrhage [None]
  - Vulvovaginal swelling [None]

NARRATIVE: CASE EVENT DATE: 20150206
